FAERS Safety Report 19377464 (Version 1)
Quarter: 2021Q2

REPORT INFORMATION
  Report Type: Spontaneous
  Country: CA (occurrence: CA)
  Receive Date: 20210604
  Receipt Date: 20210604
  Transmission Date: 20210717
  Serious: Yes (Other)
  Sender: FDA-Public Use
  Company Number: CA-AMGEN-CANSP2021084489

PATIENT

DRUGS (1)
  1. XGEVA [Suspect]
     Active Substance: DENOSUMAB
     Indication: METASTASES TO BONE
     Dosage: UNK
     Route: 065

REACTIONS (12)
  - Bone disorder [Unknown]
  - Renal impairment [Unknown]
  - Spinal cord compression [Unknown]
  - Osteonecrosis of jaw [Unknown]
  - Influenza like illness [Unknown]
  - Adverse event [Unknown]
  - Arthralgia [Unknown]
  - Bone pain [Unknown]
  - Fracture [Unknown]
  - Myalgia [Unknown]
  - Hypercalcaemia [Unknown]
  - Bone operation [Unknown]
